FAERS Safety Report 8824309 (Version 2)
Quarter: 2012Q4

REPORT INFORMATION
  Report Type: 
  Country: JP (occurrence: JP)
  Receive Date: 20121004
  Receipt Date: 20121015
  Transmission Date: 20130627
  Serious: Yes (Other)
  Sender: FDA-Public Use
  Company Number: JP-ASTELLAS-2012JP008935

PATIENT
  Age: 84 Year
  Sex: Female

DRUGS (3)
  1. FUNGUARD [Suspect]
     Indication: CANDIDIASIS
     Dosage: 50 mg, Unknown/D
     Route: 041
     Dates: start: 20120926
  2. VANCOMYCIN [Suspect]
     Dosage: UNK
     Route: 048
     Dates: start: 20120926
  3. WARFARIN [Concomitant]
     Dosage: UNK
     Route: 048
     Dates: end: 20120928

REACTIONS (1)
  - Prothrombin time prolonged [Recovered/Resolved]
